FAERS Safety Report 15819809 (Version 1)
Quarter: 2019Q1

REPORT INFORMATION
  Report Type: Spontaneous
  Country: US (occurrence: US)
  Receive Date: 20190114
  Receipt Date: 20190114
  Transmission Date: 20190417
  Serious: Yes (Death)
  Sender: FDA-Public Use
  Company Number: US-MICRO LABS LIMITED-ML2019-00019

PATIENT
  Age: 72 Year
  Sex: Male

DRUGS (9)
  1. CITALOPRAM [Suspect]
     Active Substance: CITALOPRAM HYDROBROMIDE
  2. DIPHENHYDRAMINE HYDROCHLORIDE. [Suspect]
     Active Substance: DIPHENHYDRAMINE HYDROCHLORIDE
  3. O-DESMETHYLTRAMADOL [Suspect]
     Active Substance: DESMETRAMADOL
  4. NORTRIPTYLINE [Suspect]
     Active Substance: NORTRIPTYLINE
  5. BUPROPION. [Suspect]
     Active Substance: BUPROPION
     Route: 048
  6. AMITRIPTYLINE [Suspect]
     Active Substance: AMITRIPTYLINE
  7. TRAMADOL. [Suspect]
     Active Substance: TRAMADOL
  8. N-DESMETHYLTRAMADOL [Suspect]
     Active Substance: N-DEMETHYLTRAMADOL
  9. ZOLPIDEM [Suspect]
     Active Substance: ZOLPIDEM\ZOLPIDEM TARTRATE

REACTIONS (1)
  - Toxicity to various agents [Fatal]
